FAERS Safety Report 4343727-2 (Version None)
Quarter: 2004Q2

REPORT INFORMATION
  Report Type: 
  Country: None (occurrence: None)
  Receive Date: 20040419
  Receipt Date: 20040406
  Transmission Date: 20050107
  Serious: Yes (Death)
  Sender: FDA-Public Use
  Company Number: 163-20785-04020231

PATIENT
  Age: 69 Year
  Sex: Male

DRUGS (1)
  1. THALOMID [Suspect]
     Indication: MULTIPLE MYELOMA
     Dosage: 200 MG, QD; ORAL
     Route: 048
     Dates: start: 20030117, end: 20040207

REACTIONS (2)
  - CHRONIC OBSTRUCTIVE AIRWAYS DISEASE [None]
  - RESPIRATORY FAILURE [None]
